FAERS Safety Report 4954358-5 (Version None)
Quarter: 2006Q1

REPORT INFORMATION
  Report Type: 
  Country: None (occurrence: None)
  Receive Date: 20060327
  Receipt Date: 20051117
  Transmission Date: 20060701
  Serious: Yes (Death, Hospitalization, Other)
  Sender: FDA-Public Use
  Company Number: US-MERCK-0511USA03122

PATIENT
  Age: 70 Year
  Sex: Female
  Weight: 55 kg

DRUGS (4)
  1. VIOXX [Suspect]
     Indication: OSTEOARTHRITIS
     Route: 048
     Dates: start: 20001201, end: 20031001
  2. VIOXX [Suspect]
     Indication: ARTHRITIS
     Route: 048
     Dates: start: 20001201, end: 20031001
  3. TYLENOL [Concomitant]
     Indication: OEDEMA
     Route: 048
     Dates: start: 19930101, end: 20031030
  4. TYLENOL [Concomitant]
     Indication: ARTHRITIS
     Route: 048
     Dates: start: 19930101, end: 20031030

REACTIONS (4)
  - CARDIAC FAILURE [None]
  - CEREBROVASCULAR ACCIDENT [None]
  - DEATH [None]
  - PARALYSIS [None]
